FAERS Safety Report 5395089-X (Version None)
Quarter: 2007Q3

REPORT INFORMATION
  Report Type: 
  Country: None (occurrence: None)
  Receive Date: 20070724
  Receipt Date: 20070719
  Transmission Date: 20080115
  Serious: Yes (Death)
  Sender: FDA-Public Use
  Company Number: CA-NOVOPROD-265733

PATIENT
  Sex: Male

DRUGS (2)
  1. NIASTASE [Suspect]
     Indication: HAEMORRHAGE
     Dosage: 2.4 MG, BID
  2. ARGATROBAN [Concomitant]

REACTIONS (1)
  - HAEMODYNAMIC INSTABILITY [None]
